FAERS Safety Report 4790762-6 (Version None)
Quarter: 2005Q3

REPORT INFORMATION
  Report Type: 
  Country: None (occurrence: None)
  Receive Date: 20050914
  Receipt Date: 20050620
  Transmission Date: 20060218
  Serious: Yes (Hospitalization)
  Sender: FDA-Public Use
  Company Number: 028-20785-05060305

PATIENT
  Age: 4 Year
  Sex: Male

DRUGS (6)
  1. THALOMID [Suspect]
     Indication: CROHN'S DISEASE
     Dosage: 12.5 MG, DAILY, ORAL
     Route: 048
     Dates: start: 20041001, end: 20050401
  2. THALOMID [Suspect]
     Dosage: 12.5 MG, DAILY, ORAL
     Route: 048
     Dates: start: 20050101
  3. PREDNISONE [Concomitant]
  4. IMURAN [Concomitant]
  5. CIPROFLOXACIN [Concomitant]
  6. FLAGYL [Concomitant]

REACTIONS (1)
  - PNEUMONIA [None]
